FAERS Safety Report 12667291 (Version 1)
Quarter: 2016Q3

REPORT INFORMATION
  Report Type: Spontaneous
  Country: US (occurrence: None)
  Receive Date: 20160818
  Receipt Date: 20160818
  Transmission Date: 20161109
  Serious: Yes (Hospitalization)
  Sender: FDA-Public Use
  Company Number: None

PATIENT
  Age: 50 Year
  Sex: Female
  Weight: 108.8 kg

DRUGS (2)
  1. FUROSEMIDE. [Suspect]
     Active Substance: FUROSEMIDE
     Indication: OEDEMA
     Route: 048
     Dates: start: 20160607, end: 20160707
  2. SULFAMETHOXAZOLE/TRIMETHOPRIM [Suspect]
     Active Substance: SULFAMETHOXAZOLE\TRIMETHOPRIM
     Indication: CELLULITIS
     Route: 048
     Dates: start: 20160607, end: 20160621

REACTIONS (21)
  - Acute kidney injury [None]
  - Lymphadenopathy [None]
  - Pancreas infection [None]
  - Rash [None]
  - Abscess [None]
  - Abdominal pain [None]
  - Scab [None]
  - Peripheral swelling [None]
  - Blister [None]
  - Obstruction [None]
  - Wound secretion [None]
  - Eosinophilia [None]
  - Anaemia [None]
  - Diarrhoea [None]
  - Pyrexia [None]
  - Drug reaction with eosinophilia and systemic symptoms [None]
  - Eczema [None]
  - Skin exfoliation [None]
  - Dry skin [None]
  - Cellulitis staphylococcal [None]
  - Autoimmune disorder [None]

NARRATIVE: CASE EVENT DATE: 20160708
